FAERS Safety Report 21446452 (Version 1)
Quarter: 2022Q4

REPORT INFORMATION
  Report Type: Spontaneous
  Country: US (occurrence: US)
  Receive Date: 20221012
  Receipt Date: 20221012
  Transmission Date: 20230113
  Serious: Yes (Other)
  Sender: FDA-Public Use
  Company Number: US-SANOFI-01313783

PATIENT
  Age: 64 Year
  Sex: Female

DRUGS (2)
  1. DUPIXENT [Suspect]
     Active Substance: DUPILUMAB
     Indication: Nasal polyps
     Dosage: 300 MG, QOW
     Dates: start: 20220816
  2. IRON [Concomitant]
     Active Substance: IRON
     Indication: Gastrointestinal haemorrhage
     Dosage: UNK

REACTIONS (2)
  - Thrombosis [Unknown]
  - Gastrointestinal haemorrhage [Unknown]
